FAERS Safety Report 11409792 (Version 4)
Quarter: 2015Q3

REPORT INFORMATION
  Report Type: Spontaneous
  Country: US (occurrence: US)
  Receive Date: 20150824
  Receipt Date: 20150930
  Transmission Date: 20151125
  Serious: Yes (Death, Hospitalization)
  Sender: FDA-Public Use
  Company Number: US-ROCHE-1623725

PATIENT
  Age: 82 Year
  Sex: Male
  Weight: 52.21 kg

DRUGS (1)
  1. ESBRIET [Suspect]
     Active Substance: PIRFENIDONE
     Indication: IDIOPATHIC PULMONARY FIBROSIS
     Dosage: 2403MG PER DAY
     Route: 048
     Dates: start: 20150716

REACTIONS (4)
  - Dyspnoea [Unknown]
  - Stent placement [Unknown]
  - Coronary artery disease [Fatal]
  - Cardiac failure [Fatal]

NARRATIVE: CASE EVENT DATE: 20150919
